FAERS Safety Report 6297333-3 (Version None)
Quarter: 2009Q3

REPORT INFORMATION
  Report Type: 
  Country: None (occurrence: None)
  Receive Date: 20090804
  Receipt Date: 20090804
  Transmission Date: 20100115
  Serious: Yes (Other)
  Sender: FDA-Public Use
  Company Number: None

PATIENT
  Age: 43 Year
  Sex: Female
  Weight: 80.7403 kg

DRUGS (1)
  1. RECLAST [Suspect]
     Indication: OSTEOPOROSIS

REACTIONS (8)
  - CHILLS [None]
  - MUSCULOSKELETAL STIFFNESS [None]
  - OCULAR HYPERAEMIA [None]
  - PAIN [None]
  - PALPITATIONS [None]
  - PHOTOPHOBIA [None]
  - PYREXIA [None]
  - VENTRICULAR EXTRASYSTOLES [None]
